FAERS Safety Report 13727799 (Version 1)
Quarter: 2017Q3

REPORT INFORMATION
  Report Type: Spontaneous
  Country: US (occurrence: US)
  Receive Date: 20170707
  Receipt Date: 20170707
  Transmission Date: 20171127
  Serious: No
  Sender: FDA-Public Use
  Company Number: US-TAKEDA-2017TUS014238

PATIENT
  Sex: Female

DRUGS (6)
  1. COLCRYS [Suspect]
     Active Substance: COLCHICINE
     Dosage: 0.6 MG, BID
     Route: 065
     Dates: start: 20170515, end: 20170521
  2. COLCRYS [Suspect]
     Active Substance: COLCHICINE
     Dosage: UNK
     Route: 065
     Dates: start: 20170610, end: 20170610
  3. MISOPROSTOL. [Concomitant]
     Active Substance: MISOPROSTOL
     Dosage: UNK
     Dates: start: 20170609
  4. IBUPROFEN. [Concomitant]
     Active Substance: IBUPROFEN
     Indication: PERICARDITIS
     Dosage: UNK
     Dates: end: 20170610
  5. CELEBREX [Concomitant]
     Active Substance: CELECOXIB
     Indication: PERICARDITIS
  6. COLCRYS [Suspect]
     Active Substance: COLCHICINE
     Indication: PERICARDITIS
     Dosage: 0.6 MG, BID
     Route: 065
     Dates: start: 20170425, end: 20170504

REACTIONS (7)
  - Hypoaesthesia [Not Recovered/Not Resolved]
  - Heart rate increased [Not Recovered/Not Resolved]
  - Chest pain [Not Recovered/Not Resolved]
  - Abdominal distension [Unknown]
  - Off label use [Unknown]
  - Wrong technique in product usage process [Unknown]
  - Dyspnoea [Not Recovered/Not Resolved]

NARRATIVE: CASE EVENT DATE: 20170425
